FAERS Safety Report 4592946-9 (Version None)
Quarter: 2005Q1

REPORT INFORMATION
  Report Type: 
  Country: None (occurrence: None)
  Receive Date: 20050228
  Receipt Date: 20050217
  Transmission Date: 20050727
  Serious: Yes (Hospitalization)
  Sender: FDA-Public Use
  Company Number: FR-GLAXOSMITHKLINE-B0372353A

PATIENT
  Age: 23 Year
  Sex: Female

DRUGS (7)
  1. DEROXAT [Suspect]
     Indication: ILL-DEFINED DISORDER
     Route: 048
     Dates: start: 20040125
  2. HEPTAMYL [Suspect]
     Route: 048
     Dates: start: 20040125
  3. BACTRIM [Suspect]
     Indication: URINARY TRACT INFECTION
     Dosage: 2TAB PER DAY
     Route: 048
     Dates: start: 20050110, end: 20050113
  4. NUREFLEX [Suspect]
     Route: 048
     Dates: end: 20050110
  5. SPASFON [Suspect]
     Route: 048
  6. PROPOFAN [Suspect]
     Route: 048
  7. CERAZETTE [Suspect]
     Dosage: 1TAB PER DAY
     Route: 048
     Dates: start: 20030725

REACTIONS (5)
  - LYMPHADENOPATHY [None]
  - MYALGIA [None]
  - NEUTROPENIA [None]
  - PYREXIA [None]
  - URINARY TRACT INFECTION [None]
